FAERS Safety Report 25135284 (Version 3)
Quarter: 2025Q3

REPORT INFORMATION
  Report Type: Report from Study
  Country: EU (occurrence: EU)
  Receive Date: 20250328
  Receipt Date: 20250905
  Transmission Date: 20251020
  Serious: Yes (Disabling)
  Sender: ALNYLAM PHARMACEUTICALS
  Company Number: EU-ALNYLAM PHARMACEUTICALS, INC.-ALN-2025-002103

PATIENT

DRUGS (1)
  1. AMVUTTRA [Suspect]
     Active Substance: VUTRISIRAN
     Indication: Product used for unknown indication
     Dosage: 25 MILLIGRAM, Q3M
     Route: 058
     Dates: start: 20250318, end: 20250318

REACTIONS (8)
  - Fatigue [Unknown]
  - Headache [Unknown]
  - Crying [Unknown]
  - Weight bearing difficulty [Unknown]
  - Vertigo [Unknown]
  - Fall [Unknown]
  - Hypersomnia [Unknown]
  - Blood pressure abnormal [Unknown]

NARRATIVE: CASE EVENT DATE: 20250318
